FAERS Safety Report 10332127 (Version 1)
Quarter: 2014Q3

REPORT INFORMATION
  Report Type: Spontaneous
  Country: US (occurrence: US)
  Receive Date: 20140722
  Receipt Date: 20140722
  Transmission Date: 20150326
  Serious: No
  Sender: FDA-Public Use
  Company Number: US-PFIZER INC-2014202113

PATIENT
  Age: 46 Year
  Sex: Female
  Weight: 90.7 kg

DRUGS (2)
  1. ESTROGENS CONJUGATED [Suspect]
     Active Substance: ESTROGENS, CONJUGATED
     Indication: OESTROGEN REPLACEMENT THERAPY
     Dosage: 1 MG, 1X/DAY
     Route: 048
     Dates: start: 201403, end: 2014
  2. LIPITOR [Concomitant]
     Active Substance: ATORVASTATIN CALCIUM
     Indication: BLOOD CHOLESTEROL INCREASED
     Dosage: UNK

REACTIONS (5)
  - Fatigue [Unknown]
  - Pigmentation disorder [Unknown]
  - Abdominal distension [Recovered/Resolved]
  - Somnolence [Unknown]
  - Chest pain [Unknown]

NARRATIVE: CASE EVENT DATE: 2014
